FAERS Safety Report 17715931 (Version 4)
Quarter: 2020Q3

REPORT INFORMATION
  Report Type: Spontaneous
  Country: US (occurrence: US)
  Receive Date: 20200428
  Receipt Date: 20200925
  Transmission Date: 20201102
  Serious: No
  Sender: FDA-Public Use
  Company Number: US-CELGENEUS-USA-20200307887

PATIENT
  Sex: Female

DRUGS (2)
  1. REVLIMID [Suspect]
     Active Substance: LENALIDOMIDE
     Indication: PLASMA CELL MYELOMA
     Dosage: 15 MILLIGRAM
     Route: 048
     Dates: start: 20190610
  2. REVLIMID [Suspect]
     Active Substance: LENALIDOMIDE
     Indication: ANAEMIA
     Dosage: 10 MILLIGRAM
     Route: 048
     Dates: start: 202008

REACTIONS (4)
  - Protein total increased [Unknown]
  - Weight decreased [Unknown]
  - Decreased appetite [Unknown]
  - Ageusia [Unknown]
